FAERS Safety Report 8985342 (Version 1)
Quarter: 2012Q4

REPORT INFORMATION
  Report Type: 
  Country: GB (occurrence: GB)
  Receive Date: 20121226
  Receipt Date: 20121226
  Transmission Date: 20130627
  Serious: Yes (Death)
  Sender: FDA-Public Use
  Company Number: GB-009507513-1212GBR009641

PATIENT
  Age: 31 Year
  Sex: Male

DRUGS (7)
  1. MIRTAZAPINE [Suspect]
     Indication: DEPRESSION
     Dosage: 45 mg, qd
     Route: 048
     Dates: start: 2012
  2. MIRTAZAPINE [Suspect]
     Dosage: UNK
     Route: 048
     Dates: start: 20120824
  3. CIPRALEX [Suspect]
     Indication: DEPRESSION
     Dosage: 10 mg, qd
     Route: 048
     Dates: start: 20120823
  4. CIPRALEX [Suspect]
     Dosage: UNK
     Dates: start: 20120824
  5. QUETIAPINE FUMARATE [Suspect]
     Indication: DEPRESSION
     Dosage: 450 mg, qd
     Route: 048
     Dates: start: 2011
  6. QUETIAPINE FUMARATE [Suspect]
     Dosage: UNK
     Route: 048
     Dates: start: 20120824
  7. DIAZEPAM [Concomitant]
     Dosage: 5 mg, qd
     Route: 048

REACTIONS (1)
  - Overdose [Fatal]
